FAERS Safety Report 5008193-2 (Version None)
Quarter: 2006Q2

REPORT INFORMATION
  Report Type: 
  Country: None (occurrence: None)
  Receive Date: 20060522
  Receipt Date: 20060519
  Transmission Date: 20061013
  Serious: Yes (Disabling)
  Sender: FDA-Public Use
  Company Number: AU-MERCK-0605AUS00198

PATIENT
  Age: 52 Year
  Sex: Female

DRUGS (7)
  1. FOSAMAX [Suspect]
     Route: 048
  2. LEFLUNOMIDE [Concomitant]
     Route: 065
  3. CALCIUM (UNSPECIFIED) [Concomitant]
     Route: 065
  4. PREDNISOLONE [Concomitant]
     Route: 065
  5. ENBREL [Suspect]
     Indication: RHEUMATOID ARTHRITIS
     Route: 058
     Dates: start: 20020415
  6. ANALGESIC OR ANESTHETIC (UNSPECIFIED) [Concomitant]
     Route: 065
  7. ANTIMICROBIAL (UNSPECIFIED) [Concomitant]
     Route: 065

REACTIONS (3)
  - ABSCESS [None]
  - BLINDNESS [None]
  - TOOTH EXTRACTION [None]
